FAERS Safety Report 20881698 (Version 2)
Quarter: 2022Q2

REPORT INFORMATION
  Report Type: Spontaneous
  Country: AU (occurrence: AU)
  Receive Date: 20220527
  Receipt Date: 20220611
  Transmission Date: 20220721
  Serious: Yes (Hospitalization, Other)
  Sender: FDA-Public Use
  Company Number: AU-JNJFOC-20220446163

PATIENT
  Age: 58 Year
  Sex: Male
  Weight: 115.2 kg

DRUGS (26)
  1. DARZALEX [Suspect]
     Active Substance: DARATUMUMAB
     Indication: Plasma cell myeloma
     Route: 058
     Dates: start: 20211026, end: 20220303
  2. TECLISTAMAB [Suspect]
     Active Substance: TECLISTAMAB
     Indication: Plasma cell myeloma
     Route: 058
     Dates: start: 20211027, end: 20220317
  3. LENALIDOMIDE [Suspect]
     Active Substance: LENALIDOMIDE
     Indication: Plasma cell myeloma
     Route: 048
     Dates: start: 20211116, end: 20220316
  4. ZAN EXTRA [Concomitant]
     Indication: Hypertension
     Route: 048
     Dates: start: 20180101
  5. ASPIRIN [Concomitant]
     Active Substance: ASPIRIN
     Indication: Thrombosis prophylaxis
     Route: 048
     Dates: start: 20210601
  6. CROSUVA [Concomitant]
     Indication: Hypercholesterolaemia
     Route: 048
     Dates: start: 20210601
  7. ERGOCALCIFEROL [Concomitant]
     Active Substance: ERGOCALCIFEROL
     Indication: Vitamin supplementation
     Route: 048
     Dates: start: 20210601
  8. MAGNESIUM ASPARTATE [Concomitant]
     Active Substance: MAGNESIUM ASPARTATE
     Indication: Muscle spasms
     Route: 048
     Dates: start: 20210801
  9. OMEPRAZOLE [Concomitant]
     Active Substance: OMEPRAZOLE
     Indication: Gastrooesophageal reflux disease
     Route: 048
     Dates: start: 20211012
  10. VALACYCLOVIR HYDROCHLORIDE [Concomitant]
     Active Substance: VALACYCLOVIR HYDROCHLORIDE
     Indication: Antiviral prophylaxis
     Route: 048
     Dates: start: 20211027
  11. BACTRIM [Concomitant]
     Active Substance: SULFAMETHOXAZOLE\TRIMETHOPRIM
     Indication: Prophylaxis
     Route: 048
     Dates: start: 20211027
  12. DOCUSATE SODIUM\SENNOSIDE B [Concomitant]
     Active Substance: DOCUSATE SODIUM\SENNOSIDE B
     Indication: Constipation
     Route: 048
     Dates: start: 20211031
  13. MOLNUPIRAVIR [Concomitant]
     Active Substance: MOLNUPIRAVIR
     Indication: COVID-19
     Route: 048
     Dates: start: 20220323, end: 20220327
  14. ACETAMINOPHEN [Concomitant]
     Active Substance: ACETAMINOPHEN
     Indication: Pneumonia
     Route: 048
     Dates: start: 20220411, end: 20220419
  15. DEXAMETHASONE [Concomitant]
     Active Substance: DEXAMETHASONE
     Indication: Pneumonia
     Route: 048
     Dates: start: 20220413, end: 20220413
  16. DEXAMETHASONE [Concomitant]
     Active Substance: DEXAMETHASONE
     Route: 048
     Dates: start: 20220429, end: 20220506
  17. AZITHROMYCIN [Concomitant]
     Active Substance: AZITHROMYCIN
     Indication: Pneumonia
     Route: 048
     Dates: start: 20220413, end: 20220417
  18. PIPERACILLIN SODIUM\TAZOBACTAM SODIUM [Concomitant]
     Active Substance: PIPERACILLIN SODIUM\TAZOBACTAM SODIUM
     Indication: Pneumonia
     Route: 042
     Dates: start: 20220414, end: 20220415
  19. PIPERACILLIN SODIUM\TAZOBACTAM SODIUM [Concomitant]
     Active Substance: PIPERACILLIN SODIUM\TAZOBACTAM SODIUM
     Route: 042
     Dates: start: 20220415, end: 20220420
  20. BARICITINIB [Concomitant]
     Active Substance: BARICITINIB
     Indication: Pneumonia
     Route: 048
     Dates: start: 20220414, end: 20220423
  21. AMOXICILLIN\CLAVULANATE POTASSIUM [Concomitant]
     Active Substance: AMOXICILLIN\CLAVULANATE POTASSIUM
     Indication: Pneumonia
     Dosage: 875/125
     Route: 048
     Dates: start: 20220420, end: 20220423
  22. REMDESIVIR [Concomitant]
     Active Substance: REMDESIVIR
     Indication: COVID-19 pneumonia
     Route: 042
     Dates: start: 20220430, end: 20220430
  23. REMDESIVIR [Concomitant]
     Active Substance: REMDESIVIR
     Route: 042
     Dates: start: 20220501, end: 20220505
  24. REMDESIVIR [Concomitant]
     Active Substance: REMDESIVIR
     Route: 042
     Dates: start: 20220501, end: 20220505
  25. TIXAGEVIMAB [Concomitant]
     Active Substance: TIXAGEVIMAB
     Indication: COVID-19 pneumonia
     Route: 030
     Dates: start: 20220502, end: 20220502
  26. CILGAVIMAB [Concomitant]
     Active Substance: CILGAVIMAB
     Indication: COVID-19 pneumonia
     Route: 030
     Dates: start: 20220502, end: 20220502

REACTIONS (2)
  - Pneumonia [Recovering/Resolving]
  - COVID-19 pneumonia [Recovered/Resolved]

NARRATIVE: CASE EVENT DATE: 20220407
